FAERS Safety Report 16742026 (Version 1)
Quarter: 2019Q3

REPORT INFORMATION
  Report Type: Spontaneous
  Country: CN (occurrence: CN)
  Receive Date: 20190826
  Receipt Date: 20190826
  Transmission Date: 20191005
  Serious: Yes (Other)
  Sender: FDA-Public Use
  Company Number: CN-NOVOPROD-679960

PATIENT
  Age: 32 Year
  Sex: Male
  Weight: 64 kg

DRUGS (2)
  1. NOVOMIX 30 PENFILL [Suspect]
     Active Substance: INSULIN ASPART
     Indication: TYPE 2 DIABETES MELLITUS
     Dosage: 42 IU, QD (24-0-18)
     Route: 058
     Dates: start: 20190629
  2. NOVOMIX 30 PENFILL [Suspect]
     Active Substance: INSULIN ASPART
     Dosage: 40 IU, QD (22-0-18)
     Route: 058
     Dates: start: 20190703

REACTIONS (3)
  - Cold sweat [Recovering/Resolving]
  - Postprandial hypoglycaemia [Recovering/Resolving]
  - Palpitations [Recovering/Resolving]

NARRATIVE: CASE EVENT DATE: 20190703
